FAERS Safety Report 9800033 (Version 1)
Quarter: 2014Q1

REPORT INFORMATION
  Report Type: Spontaneous
  Country: US (occurrence: US)
  Receive Date: 20140106
  Receipt Date: 20140106
  Transmission Date: 20141002
  Serious: No
  Sender: FDA-Public Use
  Company Number: US-GILEAD-2010-0032112

PATIENT
  Age: 76 Year
  Sex: Female

DRUGS (9)
  1. LETAIRIS [Suspect]
     Indication: COR PULMONALE CHRONIC
     Route: 048
     Dates: start: 20090708
  2. DIOVAN [Concomitant]
  3. FUROSEMIDE [Concomitant]
  4. ATACAND [Concomitant]
  5. ZOCOR [Concomitant]
  6. ASPIRIN [Concomitant]
  7. ALENDRONATE [Concomitant]
  8. LEVOTHYROXINE [Concomitant]
  9. NIACIN [Concomitant]

REACTIONS (1)
  - Haemoptysis [Unknown]
